FAERS Safety Report 16864798 (Version 1)
Quarter: 2019Q3

REPORT INFORMATION
  Report Type: Spontaneous
  Country: JP (occurrence: JP)
  Receive Date: 20190929
  Receipt Date: 20190929
  Transmission Date: 20191005
  Serious: Yes (Other)
  Sender: FDA-Public Use
  Company Number: JP-AMGEN-JPNSP2019084353

PATIENT
  Age: 69 Year
  Sex: Female

DRUGS (7)
  1. MUCOSTA [Concomitant]
     Active Substance: REBAMIPIDE
     Dosage: UNK
     Route: 065
  2. ORENCIA [Concomitant]
     Active Substance: ABATACEPT
     Dosage: 500 UNK
     Route: 065
  3. MUCOSTA [Concomitant]
     Active Substance: REBAMIPIDE
     Dosage: UNK
     Route: 065
  4. PRALIA [Suspect]
     Active Substance: DENOSUMAB
     Indication: OSTEOPOROSIS
     Dosage: 60 MICROGRAM, Q6MO
     Route: 023
     Dates: start: 201405, end: 201605
  5. ORENCIA [Concomitant]
     Active Substance: ABATACEPT
     Dosage: 500 UNK
     Route: 065
  6. PRALIA [Suspect]
     Active Substance: DENOSUMAB
     Dosage: UNK
     Route: 023
     Dates: start: 20170911
  7. LOXOPROFEN [Concomitant]
     Active Substance: LOXOPROFEN
     Dosage: UNK
     Route: 065

REACTIONS (1)
  - Spinal compression fracture [Recovered/Resolved]

NARRATIVE: CASE EVENT DATE: 20170221
